FAERS Safety Report 7316168-3 (Version None)
Quarter: 2011Q1

REPORT INFORMATION
  Report Type: 
  Country: None (occurrence: None)
  Receive Date: 20110225
  Receipt Date: 20110218
  Transmission Date: 20110831
  Serious: Yes (Other)
  Sender: FDA-Public Use
  Company Number: US-CEPHALON-2009010131

PATIENT
  Sex: Female
  Weight: 60 kg

DRUGS (8)
  1. SIMVASTATIN [Concomitant]
     Indication: HYPERCHOLESTEROLAEMIA
     Route: 048
  2. ELMIRON [Concomitant]
     Indication: CYSTITIS INTERSTITIAL
     Route: 048
     Dates: start: 20080901
  3. VESICARE [Concomitant]
     Indication: CYSTITIS INTERSTITIAL
     Route: 048
     Dates: start: 20081201
  4. ZETIA [Concomitant]
     Indication: HYPERCHOLESTEROLAEMIA
     Route: 048
  5. AMITRIPTYLINE HCL [Concomitant]
     Indication: CYSTITIS INTERSTITIAL
     Route: 048
     Dates: start: 20090201
  6. ATARAX [Concomitant]
     Indication: CYSTITIS INTERSTITIAL
     Route: 048
     Dates: start: 20080901
  7. NUVIGIL [Suspect]
     Indication: NARCOLEPSY
     Route: 048
     Dates: start: 20090817, end: 20090901
  8. ZYRTEC [Concomitant]
     Indication: SEASONAL ALLERGY
     Route: 048

REACTIONS (5)
  - OROPHARYNGEAL PAIN [None]
  - SKIN BURNING SENSATION [None]
  - RASH ERYTHEMATOUS [None]
  - SWELLING FACE [None]
  - PAIN [None]
